FAERS Safety Report 4285614-4 (Version None)
Quarter: 2004Q1

REPORT INFORMATION
  Report Type: 
  Country: None (occurrence: None)
  Receive Date: 20040203
  Receipt Date: 20040122
  Transmission Date: 20041129
  Serious: Yes (Hospitalization)
  Sender: FDA-Public Use
  Company Number: 03P-163-0239490-00

PATIENT
  Age: 81 Year
  Sex: Female
  Weight: 55.3388 kg

DRUGS (4)
  1. HUMIRA [Suspect]
     Indication: RHEUMATOID ARTHRITIS
     Dosage: 40 MG 1 IN 2 WK, SUBCUTANEOUS
     Route: 058
     Dates: start: 20030404, end: 20030927
  2. PREDNISONE [Suspect]
     Dosage: 5 MG, 1 IN 1 D
     Dates: start: 20020601
  3. ALENDRONATE SODIUM [Concomitant]
  4. BENAZEPRIL HCL [Concomitant]

REACTIONS (2)
  - ENDOCARDITIS [None]
  - ESCHERICHIA BACTERAEMIA [None]
